FAERS Safety Report 12247777 (Version 4)
Quarter: 2016Q4

REPORT INFORMATION
  Report Type: Report from Study
  Country: BE (occurrence: BE)
  Receive Date: 20160408
  Receipt Date: 20161110
  Transmission Date: 20170207
  Serious: Yes (Hospitalization, Other)
  Sender: FDA-Public Use
  Company Number: BE-AMGEN-BELCT2016042907

PATIENT
  Age: 70 Year
  Sex: Male

DRUGS (21)
  1. NASONEX [Concomitant]
     Active Substance: MOMETASONE FUROATE
     Dosage: 1 UNK, UNK
     Route: 045
     Dates: start: 20160316, end: 20160319
  2. MULTIGAM [Concomitant]
     Dosage: 30 G, UNK
  3. AUGMENTIN [Concomitant]
     Active Substance: AMOXICILLIN\CLAVULANATE POTASSIUM
     Route: 048
     Dates: start: 20160402, end: 20160405
  4. DEXAMETHASONE. [Suspect]
     Active Substance: DEXAMETHASONE
     Indication: PLASMA CELL MYELOMA
     Dosage: 40 MG, PER CHEMO REGIM
     Route: 048
     Dates: start: 20151207
  5. AMUKIN [Concomitant]
     Active Substance: AMIKACIN SULFATE
     Dosage: 1 G, UNK
     Route: 042
     Dates: start: 20160313, end: 20160315
  6. AUGMENTIN [Concomitant]
     Active Substance: AMOXICILLIN\CLAVULANATE POTASSIUM
     Dosage: 1 G, UNK
     Route: 048
     Dates: start: 20160121, end: 20160128
  7. AMLODIPINE [Concomitant]
     Active Substance: AMLODIPINE BESYLATE
     Dosage: 10 MG, UNK
     Route: 048
     Dates: start: 20160229
  8. ASAFLOW [Concomitant]
     Active Substance: ASPIRIN
     Dosage: 80 MG, UNK
     Route: 048
     Dates: start: 20151207
  9. TAZOCIN [Concomitant]
     Active Substance: PIPERACILLIN SODIUM\TAZOBACTAM SODIUM
     Dosage: 4 G, UNK
     Route: 042
     Dates: start: 20160314, end: 20160315
  10. ACICLOVIR [Concomitant]
     Active Substance: ACYCLOVIR
     Dosage: 400 MG, UNK
     Route: 048
     Dates: start: 20151207
  11. FUROSEMIDE. [Concomitant]
     Active Substance: FUROSEMIDE
     Dosage: 40 MG, UNK
     Route: 048
     Dates: start: 20151207, end: 20160313
  12. CARFILZOMIB [Suspect]
     Active Substance: CARFILZOMIB
     Indication: PLASMA CELL MYELOMA
     Dosage: 59.62 MG, PER CHEMO REGIM
     Route: 042
     Dates: start: 20151207
  13. DAFALGAN [Concomitant]
     Active Substance: ACETAMINOPHEN
     Dosage: 1 G, UNK
     Route: 048
     Dates: start: 20160313, end: 20160317
  14. PERFUSALGAN [Concomitant]
     Active Substance: ACETAMINOPHEN
     Dosage: 100 ML, UNK
     Route: 042
     Dates: start: 20160315, end: 20160315
  15. FLUCONAZOL [Concomitant]
     Active Substance: FLUCONAZOLE
     Dosage: 200 MG, UNK
     Route: 048
     Dates: start: 20151207
  16. MERONEM [Concomitant]
     Active Substance: MEROPENEM
     Dosage: 1 G, UNK
     Route: 042
     Dates: start: 20160315, end: 20160321
  17. SIROXYL [Concomitant]
     Dosage: 1 UNK, UNK
     Route: 048
     Dates: start: 20160316, end: 20160318
  18. CIPROXINE [Concomitant]
     Active Substance: CIPROFLOXACIN
     Dosage: 500 MG, UNK
     Route: 048
     Dates: start: 20160311, end: 20160321
  19. BRONCHOSEDAL [Concomitant]
     Active Substance: DEXTROMETHORPHAN HYDROBROMIDE
     Dosage: 10 ML, UNK
     Route: 048
     Dates: start: 20160314, end: 20160316
  20. PRAREDUCT [Concomitant]
     Active Substance: PRAVASTATIN SODIUM
     Dosage: 40 MG, UNK
     Route: 048
     Dates: start: 20140123
  21. ZOLPIDEM [Concomitant]
     Active Substance: ZOLPIDEM\ZOLPIDEM TARTRATE
     Dosage: 10 MG, UNK
     Route: 048
     Dates: start: 20160104

REACTIONS (1)
  - Catheter site vesicles [Recovered/Resolved]

NARRATIVE: CASE EVENT DATE: 20160402
